FAERS Safety Report 7649215-X (Version None)
Quarter: 2011Q3

REPORT INFORMATION
  Report Type: 
  Country: None (occurrence: None)
  Receive Date: 20110802
  Receipt Date: 20110720
  Transmission Date: 20111222
  Serious: Yes (Hospitalization)
  Sender: FDA-Public Use
  Company Number: ES-UCBSA-016170

PATIENT
  Age: 60 Year
  Sex: Male

DRUGS (4)
  1. PHENYTOIN [Suspect]
     Indication: CONVULSION
     Route: 048
     Dates: start: 20100509, end: 20100603
  2. DEXAMETHASONE [Suspect]
     Indication: METASTASES TO CENTRAL NERVOUS SYSTEM
     Dates: start: 20100509, end: 20100603
  3. KEPPRA [Suspect]
     Indication: CONVULSION
     Route: 048
     Dates: start: 20100525, end: 20100603
  4. ACFOL [Suspect]
     Indication: FOLATE DEFICIENCY
     Route: 048
     Dates: start: 20100509, end: 20100603

REACTIONS (3)
  - CONVULSION [None]
  - TOXIC EPIDERMAL NECROLYSIS [None]
  - RESPIRATORY DISTRESS [None]
